FAERS Safety Report 6258400-3 (Version None)
Quarter: 2009Q3

REPORT INFORMATION
  Report Type: 
  Country: None (occurrence: None)
  Receive Date: 20090707
  Receipt Date: 20090625
  Transmission Date: 20100115
  Serious: Yes (Death, Other)
  Sender: FDA-Public Use
  Company Number: JP-PFIZER INC-2009156830

PATIENT
  Age: 59 Year

DRUGS (9)
  1. SUNITINIB MALATE [Suspect]
     Indication: RENAL CELL CARCINOMA
     Dosage: 50 MG, 1X/DAY
     Route: 048
     Dates: start: 20080905
  2. MAGNESIUM OXIDE [Concomitant]
     Dosage: UNK
     Route: 048
  3. NORVASC [Concomitant]
     Dosage: UNK
     Route: 048
  4. HOCHUUEKKITOU [Concomitant]
     Dosage: UNK
     Route: 048
  5. CIMETIDINE [Concomitant]
     Dosage: UNK
     Route: 048
  6. MOBIC [Concomitant]
     Dosage: UNK
     Route: 048
  7. CYTOTEC [Concomitant]
     Dosage: UNK
     Route: 048
  8. RHYTHMY [Concomitant]
     Dosage: UNK
     Route: 048
  9. BLOPRESS [Concomitant]
     Route: 048
     Dates: start: 20080921, end: 20081013

REACTIONS (4)
  - DISEASE PROGRESSION [None]
  - PLATELET COUNT DECREASED [None]
  - PLEURAL EFFUSION [None]
  - RENAL CELL CARCINOMA [None]
